FAERS Safety Report 7953998-9 (Version None)
Quarter: 2011Q4

REPORT INFORMATION
  Report Type: 
  Country: None (occurrence: None)
  Receive Date: 20111202
  Receipt Date: 20111202
  Transmission Date: 20120403
  Serious: Yes (Hospitalization)
  Sender: FDA-Public Use
  Company Number: None

PATIENT
  Age: 9 Year
  Sex: Female
  Weight: 35.9 kg

DRUGS (1)
  1. LAMOTRIGINE [Suspect]
     Indication: AFFECTIVE DISORDER
     Dosage: 25MG
     Route: 048

REACTIONS (2)
  - RASH ERYTHEMATOUS [None]
  - PRURITUS [None]
